FAERS Safety Report 10896508 (Version 3)
Quarter: 2015Q3

REPORT INFORMATION
  Report Type: Spontaneous
  Country: IT (occurrence: IT)
  Receive Date: 20150309
  Receipt Date: 20150910
  Transmission Date: 20151125
  Serious: Yes (Other)
  Sender: FDA-Public Use
  Company Number: IT-ROCHE-1548798

PATIENT
  Age: 80 Year
  Sex: Female

DRUGS (5)
  1. LAMOTRIGINE. [Concomitant]
     Active Substance: LAMOTRIGINE
     Indication: EPILEPSY
     Route: 048
  2. COUMADIN [Interacting]
     Active Substance: WARFARIN SODIUM
     Indication: PULMONARY EMBOLISM
     Dosage: 5 MG TABLETS 30 SCORED TABLETS
     Route: 048
     Dates: start: 20140601, end: 20150129
  3. COUMADIN [Interacting]
     Active Substance: WARFARIN SODIUM
     Indication: PULMONARY INFARCTION
  4. ROCEFIN [Suspect]
     Active Substance: CEFTRIAXONE SODIUM
     Indication: URINARY TRACT INFECTION
     Dosage: 250 MG/2 ML 1 VIAL + 1 2 ML AMPOULE OF SOLVENT
     Route: 030
     Dates: start: 20150128, end: 20150129
  5. GARDENALE [Concomitant]
     Active Substance: PHENOBARBITAL
     Indication: EPILEPSY
     Dosage: 100 MG TABLETS 20 TABLETS
     Route: 048

REACTIONS (4)
  - Drug interaction [Unknown]
  - Hypocoagulable state [Unknown]
  - Oedema peripheral [Unknown]
  - Haematoma [Unknown]

NARRATIVE: CASE EVENT DATE: 20150129
